FAERS Safety Report 9250589 (Version 1)
Quarter: 2013Q1

REPORT INFORMATION
  Report Type: Spontaneous
  Country: US (occurrence: None)
  Receive Date: 20130305
  Receipt Date: 20130305
  Transmission Date: 20140127
  Serious: Yes (Other)
  Sender: FDA-Public Use
  Company Number: 163-21880-12092905

PATIENT
  Age: 81 Year
  Sex: Female
  Weight: 56.7 kg

DRUGS (13)
  1. REVLIMID [Suspect]
     Indication: PLASMA CELL MYELOMA
     Dosage: 25 MG, 1 IN 1 D, PO
     Route: 048
     Dates: start: 20090528
  2. ASPIRIN (ACETYLSALICYLIC ACID) (UNKNOWN) (ACETYLSALICYLIC ACID) [Concomitant]
  3. ESTRADIOL (ESTRADIOL) (GEL) [Concomitant]
  4. LAC-HYDRIN (AMONIUM LACTATE) [Concomitant]
  5. MAGNESIUM OXIDED (MAGNESIUM OXIDE) [Concomitant]
  6. OSCAL (CALCIUM CARBONATE) [Concomitant]
  7. PERCOCET (OXYCOCET) [Concomitant]
  8. SYNTHROID (LEVOTHYROXINE SODIUM) [Concomitant]
  9. VESICARE (SOLIFENACIN SUCCINATE) [Concomitant]
  10. VITAMIN C [Concomitant]
  11. VITAMIN D (ESCALCIFEROL) [Concomitant]
  12. VITAMIN B12 (CYANOCOBALAMIN) [Concomitant]
  13. BOOST (BOOST) [Concomitant]

REACTIONS (1)
  - Localised infection [None]
